FAERS Safety Report 9787268 (Version 3)
Quarter: 2014Q1

REPORT INFORMATION
  Report Type: Spontaneous
  Country: IT (occurrence: IT)
  Receive Date: 20131230
  Receipt Date: 20140121
  Transmission Date: 20141002
  Serious: Yes (Hospitalization, Other)
  Sender: FDA-Public Use
  Company Number: IT-009507513-1312ITA006918

PATIENT
  Age: 26 Year
  Sex: Female

DRUGS (2)
  1. THERAPY UNSPECIFIED [Suspect]
     Indication: HEART BLOCK CONGENITAL
     Dosage: 4 MG DAILY
     Route: 048
     Dates: start: 19940919, end: 19940919
  2. BENTELAN [Suspect]
     Indication: HEART BLOCK CONGENITAL
     Dosage: 4 MG, DAILY
     Route: 048
     Dates: start: 19940919, end: 19941128

REACTIONS (2)
  - Complication of delivery [Recovered/Resolved]
  - Exposure during pregnancy [Recovered/Resolved]
